FAERS Safety Report 19408008 (Version 4)
Quarter: 2021Q4

REPORT INFORMATION
  Report Type: Report from Study
  Country: MX (occurrence: MX)
  Receive Date: 20210611
  Receipt Date: 20211204
  Transmission Date: 20220303
  Serious: Yes (Other)
  Sender: FDA-Public Use
  Company Number: NVSC2021MX128552

PATIENT
  Age: 52 Year
  Sex: Female
  Weight: 52 kg

DRUGS (4)
  1. ELTROMBOPAG OLAMINE [Suspect]
     Active Substance: ELTROMBOPAG OLAMINE
     Indication: Platelet count decreased
     Dosage: 1 DF, QD (50 MG)
     Route: 048
     Dates: start: 20210520
  2. ELTROMBOPAG OLAMINE [Suspect]
     Active Substance: ELTROMBOPAG OLAMINE
     Indication: Purpura
     Dosage: 1 DF, QD (50 MG)
     Route: 048
     Dates: start: 202105
  3. ELTROMBOPAG OLAMINE [Suspect]
     Active Substance: ELTROMBOPAG OLAMINE
     Dosage: 1 DOSAGE FORM, QD (50 MG) (STOPPED 1 MONTH AGO)
     Route: 065
  4. ELTROMBOPAG OLAMINE [Suspect]
     Active Substance: ELTROMBOPAG OLAMINE
     Dosage: 1 DOSAGE FORM (50 MG)  (DAY IN BETWWEN) (STARTED FROM 1 MONTH AGO)
     Route: 065

REACTIONS (12)
  - Asphyxia [Unknown]
  - Platelet count decreased [Recovering/Resolving]
  - Gastritis [Not Recovered/Not Resolved]
  - Dyspepsia [Unknown]
  - Epigastric discomfort [Unknown]
  - Abdominal pain [Unknown]
  - Oral pain [Unknown]
  - Aphonia [Unknown]
  - Nasopharyngitis [Unknown]
  - Platelet count increased [Unknown]
  - Product use in unapproved indication [Unknown]
  - Inappropriate schedule of product administration [Recovering/Resolving]

NARRATIVE: CASE EVENT DATE: 20210522
